FAERS Safety Report 17110930 (Version 1)
Quarter: 2019Q4

REPORT INFORMATION
  Report Type: Spontaneous
  Country: US (occurrence: US)
  Receive Date: 20191109
  Receipt Date: 20191109
  Transmission Date: 20200122
  Serious: No
  Sender: FDA-Public Use
  Company Number: None

PATIENT
  Age: 37 Year
  Sex: Female

DRUGS (1)
  1. LUPRON DEPOT [Suspect]
     Active Substance: LEUPROLIDE ACETATE
     Route: 030
     Dates: start: 20190717

REACTIONS (4)
  - Aggression [None]
  - Impatience [None]
  - Anger [None]
  - Abnormal behaviour [None]

NARRATIVE: CASE EVENT DATE: 20191109
